FAERS Safety Report 13600897 (Version 1)
Quarter: 2017Q2

REPORT INFORMATION
  Report Type: Spontaneous
  Country: US (occurrence: US)
  Receive Date: 20170531
  Receipt Date: 20170531
  Transmission Date: 20170830
  Serious: Yes (Death)
  Sender: FDA-Public Use
  Company Number: None

PATIENT
  Age: 90 Year
  Sex: Female

DRUGS (1)
  1. SILDENAFIL TAB 20 MG B [Suspect]
     Active Substance: SILDENAFIL

REACTIONS (1)
  - Death [None]

NARRATIVE: CASE EVENT DATE: 20170524
